FAERS Safety Report 5403780-1 (Version None)
Quarter: 2007Q3

REPORT INFORMATION
  Report Type: 
  Country: None (occurrence: None)
  Receive Date: 20070706
  Receipt Date: 20060526
  Transmission Date: 20080115
  Serious: Yes (Hospitalization)
  Sender: FDA-Public Use
  Company Number: 449955

PATIENT
  Age: 31 Year
  Sex: Female
  Weight: 70.3 kg

DRUGS (6)
  1. CELLCEPT [Suspect]
     Dosage: 200 MG 2 PER DAY ORAL
     Route: 048
     Dates: start: 20040615, end: 20050615
  2. PREDNISONE TAB [Concomitant]
  3. CYCLOSPORINE [Concomitant]
  4. ZANTAC [Concomitant]
  5. COZAAR [Concomitant]
  6. NORVASC [Concomitant]

REACTIONS (4)
  - DEHYDRATION [None]
  - DIARRHOEA [None]
  - INFECTION [None]
  - VOMITING [None]
